APPROVED DRUG PRODUCT: DEXTROAMPHETAMINE SULFATE
Active Ingredient: DEXTROAMPHETAMINE SULFATE
Strength: 10MG
Dosage Form/Route: TABLET;ORAL
Application: A210059 | Product #002 | TE Code: AA
Applicant: NUVO PHARMACEUTICAL INC
Approved: Oct 18, 2017 | RLD: No | RS: No | Type: RX